FAERS Safety Report 5900322-9 (Version None)
Quarter: 2008Q3

REPORT INFORMATION
  Report Type: 
  Country: None (occurrence: None)
  Receive Date: 20080926
  Receipt Date: 20080915
  Transmission Date: 20090109
  Serious: Yes (Other)
  Sender: FDA-Public Use
  Company Number: US-WYE-H05996208

PATIENT
  Sex: Female

DRUGS (4)
  1. PRISTIQ [Suspect]
     Indication: DEPRESSION
     Dosage: 50 MG EVERY 1 TOT
     Route: 048
     Dates: start: 20080912, end: 20080912
  2. HYDROCHLOROTHIAZIDE [Concomitant]
     Dosage: UNKNOWN
     Dates: start: 19980101
  3. PREMARIN [Concomitant]
     Indication: HORMONE REPLACEMENT THERAPY
     Dates: start: 19880101
  4. VITAMIN TAB [Concomitant]
     Dosage: UNKNOWN

REACTIONS (10)
  - ABNORMAL DREAMS [None]
  - ABNORMAL SENSATION IN EYE [None]
  - AMNESIA [None]
  - BLOOD PRESSURE INCREASED [None]
  - DISTURBANCE IN ATTENTION [None]
  - DRUG HYPERSENSITIVITY [None]
  - DRUG TOXICITY [None]
  - HYPOAESTHESIA [None]
  - HYPOAESTHESIA FACIAL [None]
  - VISION BLURRED [None]
